FAERS Safety Report 5557895-8 (Version None)
Quarter: 2007Q4

REPORT INFORMATION
  Report Type: 
  Country: None (occurrence: None)
  Receive Date: 20071214
  Receipt Date: 20071211
  Transmission Date: 20080405
  Serious: Yes (Life-Threatening)
  Sender: FDA-Public Use
  Company Number: GB-ASTRAZENECA-2007GB02551

PATIENT
  Age: 52 Year
  Sex: Female

DRUGS (1)
  1. LIGNOCAINE [Suspect]
     Indication: BRONCHOSCOPY
     Route: 045
     Dates: start: 20071121, end: 20071121

REACTIONS (3)
  - DYSPNOEA [None]
  - RASH [None]
  - WHEEZING [None]
